FAERS Safety Report 7801337-6 (Version None)
Quarter: 2011Q4

REPORT INFORMATION
  Report Type: 
  Country: None (occurrence: None)
  Receive Date: 20111007
  Receipt Date: 20111004
  Transmission Date: 20120403
  Serious: No
  Sender: FDA-Public Use
  Company Number: US-PFIZER INC-2011237138

PATIENT
  Sex: Female
  Weight: 72.5 kg

DRUGS (8)
  1. ADVIL PM [Suspect]
     Indication: SLEEP DISORDER
     Dosage: 2 DF, 1X/DAY
     Route: 048
     Dates: start: 20110930, end: 20111003
  2. MULTI-VITAMINS [Concomitant]
     Dosage: UNK, 1X/DAY
  3. CO-Q-10 [Concomitant]
     Dosage: UNK, 1X/DAY
  4. BYETTA [Concomitant]
     Dosage: UNK, 2X/DAY
  5. LISINOPRIL [Concomitant]
     Dosage: UNK, 1X/DAY
  6. METOPROLOL [Concomitant]
     Dosage: 25 MG, 1X/DAY
  7. METFORMIN [Concomitant]
     Dosage: 500 MG, 2X/DAY
  8. NAPROXEN (ALEVE) [Concomitant]
     Dosage: UNK, 2X/DAY

REACTIONS (1)
  - MALAISE [None]
